FAERS Safety Report 12876519 (Version 3)
Quarter: 2016Q4

REPORT INFORMATION
  Report Type: Spontaneous
  Country: US (occurrence: US)
  Receive Date: 20161024
  Receipt Date: 20161104
  Transmission Date: 20170207
  Serious: Yes (Other)
  Sender: FDA-Public Use
  Company Number: US-BAUSCH-BL-2016-025729

PATIENT
  Age: 17 Year
  Sex: Male
  Weight: 154.36 kg

DRUGS (7)
  1. XENAZINE [Suspect]
     Active Substance: TETRABENAZINE
     Indication: HUNTINGTON^S DISEASE
     Dosage: TWO 25 MG TABLETS
     Route: 048
     Dates: start: 201409
  2. LAMICTAL [Concomitant]
     Active Substance: LAMOTRIGINE
     Indication: PRODUCT USED FOR UNKNOWN INDICATION
     Route: 048
  3. ZOLOFT [Concomitant]
     Active Substance: SERTRALINE HYDROCHLORIDE
     Indication: PRODUCT USED FOR UNKNOWN INDICATION
     Dosage: AT BED TIME
     Route: 048
  4. TRAZODONE [Concomitant]
     Active Substance: TRAZODONE HYDROCHLORIDE
     Indication: PRODUCT USED FOR UNKNOWN INDICATION
     Dosage: AT BED TIME
     Route: 048
  5. XENAZINE [Suspect]
     Active Substance: TETRABENAZINE
     Dosage: TWO 25 MG TABLETS
     Route: 048
  6. XENAZINE [Suspect]
     Active Substance: TETRABENAZINE
     Indication: TOURETTE^S DISORDER
     Dosage: TWO AND HALF TABLETS OF 25 MG
     Route: 048
  7. CLONAZEPAM. [Concomitant]
     Active Substance: CLONAZEPAM
     Indication: PRODUCT USED FOR UNKNOWN INDICATION
     Route: 048

REACTIONS (5)
  - Weight increased [Recovered/Resolved]
  - Prescribed overdose [Unknown]
  - Pupil fixed [Recovered/Resolved]
  - Hypopnoea [Recovered/Resolved]
  - Musculoskeletal stiffness [Recovered/Resolved]

NARRATIVE: CASE EVENT DATE: 20150203
